FAERS Safety Report 16419108 (Version 2)
Quarter: 2019Q2

REPORT INFORMATION
  Report Type: Spontaneous
  Country: US (occurrence: US)
  Receive Date: 20190612
  Receipt Date: 20190621
  Transmission Date: 20190711
  Serious: Yes (Hospitalization)
  Sender: FDA-Public Use
  Company Number: US-ASTRAZENECA-2018SF65121

PATIENT
  Age: 20348 Day
  Sex: Male

DRUGS (4)
  1. GLYBURIDE. [Concomitant]
     Active Substance: GLYBURIDE
  2. NEXIUM 24HR [Suspect]
     Active Substance: ESOMEPRAZOLE MAGNESIUM
     Indication: GASTRIC PH INCREASED
     Route: 048
     Dates: start: 2010, end: 2015
  3. NEXIUM [Suspect]
     Active Substance: ESOMEPRAZOLE MAGNESIUM
     Indication: GASTRIC PH INCREASED
     Route: 048
     Dates: start: 2010, end: 2015
  4. HYDRALAZINE [Concomitant]
     Active Substance: HYDRALAZINE HYDROCHLORIDE

REACTIONS (6)
  - Tubulointerstitial nephritis [Unknown]
  - Acute kidney injury [Unknown]
  - End stage renal disease [Unknown]
  - Dyspepsia [Unknown]
  - Chronic kidney disease [Unknown]
  - Renal failure [Unknown]

NARRATIVE: CASE EVENT DATE: 20151013
